FAERS Safety Report 7761163-3 (Version None)
Quarter: 2011Q3

REPORT INFORMATION
  Report Type: 
  Country: None (occurrence: None)
  Receive Date: 20110920
  Receipt Date: 20110908
  Transmission Date: 20111222
  Serious: Yes (Death)
  Sender: FDA-Public Use
  Company Number: US-ELI_LILLY_AND_COMPANY-US201106005627

PATIENT
  Sex: Male

DRUGS (4)
  1. COUMADIN [Concomitant]
     Dosage: 5 MG, UNK
  2. FORTEO [Suspect]
     Dosage: 20 UG, QD
     Route: 065
  3. FORTEO [Suspect]
     Indication: OSTEOPOROSIS
     Dosage: 20 UG, QD
     Route: 065
     Dates: start: 20110609
  4. COUMADIN [Concomitant]
     Dosage: 2.5 MG, UNK

REACTIONS (4)
  - VOMITING [None]
  - DEATH [None]
  - NAUSEA [None]
  - ANTICOAGULATION DRUG LEVEL BELOW THERAPEUTIC [None]
